FAERS Safety Report 4801285-X (Version None)
Quarter: 2005Q4

REPORT INFORMATION
  Report Type: 
  Country: None (occurrence: None)
  Receive Date: 20051011
  Receipt Date: 20050928
  Transmission Date: 20060501
  Serious: Yes (Death)
  Sender: FDA-Public Use
  Company Number: WAES 0509USA02264

PATIENT
  Age: 70 Year
  Sex: Male

DRUGS (3)
  1. COZAAR [Suspect]
     Indication: HYPERTENSION
     Dosage: SEE IMAGE, PO
     Route: 048
     Dates: start: 20011229, end: 20021221
  2. COZAAR [Suspect]
     Indication: HYPERTENSION
     Dosage: SEE IMAGE, PO
     Route: 048
     Dates: start: 20031216, end: 20040308
  3. COZAAR [Suspect]
     Indication: HYPERTENSION
     Dosage: SEE IMAGE, PO
     Route: 048
     Dates: start: 20040309, end: 20040912

REACTIONS (1)
  - ACUTE MYOCARDIAL INFARCTION [None]
